FAERS Safety Report 11807634 (Version 1)
Quarter: 2015Q4

REPORT INFORMATION
  Report Type: Spontaneous
  Country: MX (occurrence: MX)
  Receive Date: 20151207
  Receipt Date: 20151207
  Transmission Date: 20160305
  Serious: Yes (Death, Hospitalization)
  Sender: FDA-Public Use
  Company Number: PHHY2015MX158629

PATIENT
  Age: 42 Year
  Sex: Female

DRUGS (4)
  1. AMPHOTERICIN B. [Suspect]
     Active Substance: AMPHOTERICIN B
     Indication: CRYPTOCOCCOSIS
     Dosage: 0.7 MG/KG
     Route: 065
  2. COTRIMOXAZOLE [Suspect]
     Active Substance: SULFAMETHOXAZOLE\TRIMETHOPRIM
     Indication: CRYPTOCOCCOSIS
     Dosage: 400 MG, QD
     Route: 048
  3. FLUCONAZOLE. [Concomitant]
     Active Substance: FLUCONAZOLE
     Indication: CRYPTOCOCCOSIS
     Dosage: 400 MG, BID
     Route: 042
  4. COTRIMOXAZOLE [Suspect]
     Active Substance: SULFAMETHOXAZOLE\TRIMETHOPRIM
     Dosage: 80 MG, QD
     Route: 048

REACTIONS (6)
  - Lactic acidosis [Unknown]
  - Renal failure [Unknown]
  - Abdominal sepsis [Fatal]
  - Thrombocytopenia [Recovered/Resolved]
  - Haemolytic anaemia [Unknown]
  - Malaise [Unknown]
